FAERS Safety Report 9575120 (Version 1)
Quarter: 2013Q4

REPORT INFORMATION
  Report Type: Spontaneous
  Country: US (occurrence: US)
  Receive Date: 20131001
  Receipt Date: 20131001
  Transmission Date: 20140711
  Serious: Yes (Other)
  Sender: FDA-Public Use
  Company Number: US-NAPPMUNDI-USA-2012-0081017

PATIENT
  Age: 81 Year
  Sex: Female

DRUGS (2)
  1. BUTRANS [Suspect]
     Indication: NEURALGIA
     Dosage: 10 MCG, Q1H
     Dates: start: 20111201
  2. PERCOCET                           /00867901/ [Concomitant]
     Indication: BREAKTHROUGH PAIN
     Dosage: 10 MG, Q4- 6H PRN
     Route: 048
     Dates: start: 201111

REACTIONS (5)
  - Hallucination, auditory [Not Recovered/Not Resolved]
  - Hallucination, visual [Not Recovered/Not Resolved]
  - Abnormal dreams [Unknown]
  - Confusional state [Unknown]
  - Drug ineffective [Not Recovered/Not Resolved]
